FAERS Safety Report 9380553 (Version 1)
Quarter: 2013Q3

REPORT INFORMATION
  Report Type: Report from Study
  Country: ES (occurrence: ES)
  Receive Date: 20130702
  Receipt Date: 20130702
  Transmission Date: 20140515
  Serious: Yes (Hospitalization)
  Sender: FDA-Public Use
  Company Number: ES-B.I. PHARMACEUTICALS,INC./RIDGEFIELD-2013-ES-00293ES

PATIENT
  Age: 51 Year
  Sex: Male
  Weight: 75 kg

DRUGS (3)
  1. PRADAXA [Suspect]
     Indication: HIP ARTHROPLASTY
     Dosage: 150 MG
     Route: 048
     Dates: start: 20130521, end: 20130605
  2. PRADAXA [Suspect]
     Indication: THROMBOSIS PROPHYLAXIS
  3. AAS [Concomitant]
     Dosage: 100 MG
     Route: 048

REACTIONS (2)
  - Periprosthetic fracture [Recovered/Resolved]
  - Fall [Unknown]
